FAERS Safety Report 4419808-1 (Version None)
Quarter: 2004Q3

REPORT INFORMATION
  Report Type: 
  Country: None (occurrence: None)
  Receive Date: 20040804
  Receipt Date: 20040730
  Transmission Date: 20050211
  Serious: Yes (Hospitalization)
  Sender: FDA-Public Use
  Company Number: 200410043BYL

PATIENT
  Age: 76 Year
  Sex: Male

DRUGS (8)
  1. CIPROFLOXACIN [Suspect]
     Indication: PNEUMONIA
     Dosage: 300 MG, BID, INTRAVENOUS DRIP
     Route: 041
     Dates: start: 20040123, end: 20040129
  2. FOSMICIN S (FOSFOMYCIN SODIUM) [Suspect]
     Indication: PNEUMONIA
     Dosage: 4 G, TOTAL DAILY,
     Dates: start: 20040118, end: 20040122
  3. MINOCYCLINE HCL [Suspect]
     Indication: PNEUMONIA
     Dates: start: 20040118, end: 20040122
  4. SOLU-MEDROL [Concomitant]
  5. FUNGUARD [Concomitant]
  6. NEOPHYLLIN [Concomitant]
  7. FIRSTCIN [Concomitant]
  8. CLINDAMYCIN HCL [Concomitant]

REACTIONS (3)
  - DEHYDRATION [None]
  - HAEMATURIA [None]
  - RHABDOMYOLYSIS [None]
